FAERS Safety Report 5831122-6 (Version None)
Quarter: 2008Q3

REPORT INFORMATION
  Report Type: 
  Country: None (occurrence: None)
  Receive Date: 20080801
  Receipt Date: 20080422
  Transmission Date: 20090109
  Serious: Yes (Other)
  Sender: FDA-Public Use
  Company Number: US-BRISTOL-MYERS SQUIBB COMPANY-14150163

PATIENT

DRUGS (3)
  1. COUMADIN [Suspect]
     Route: 048
  2. ASPIRIN [Suspect]
     Route: 048
  3. PLAVIX [Suspect]
     Route: 048

REACTIONS (1)
  - GASTROINTESTINAL HAEMORRHAGE [None]
